FAERS Safety Report 5109351-9 (Version None)
Quarter: 2006Q3

REPORT INFORMATION
  Report Type: 
  Country: None (occurrence: None)
  Receive Date: 20060918
  Receipt Date: 20060814
  Transmission Date: 20061208
  Serious: Yes (Hospitalization)
  Sender: FDA-Public Use
  Company Number: CHPA2006US08006

PATIENT
  Age: 63 Year
  Sex: Female
  Weight: 67.1 kg

DRUGS (2)
  1. TRANSDERM SCOP [Suspect]
     Indication: PROPHYLAXIS AGAINST MOTION SICKNESS
     Dosage: 1.5 MG, Q72H, TRANSDERMAL
     Route: 062
     Dates: start: 20060718
  2. FOSAMAX [Concomitant]

REACTIONS (8)
  - ANOREXIA [None]
  - ASTHENIA [None]
  - BALANCE DISORDER [None]
  - CONFUSIONAL STATE [None]
  - DEMENTIA [None]
  - DIZZINESS [None]
  - NAUSEA [None]
  - VOMITING [None]
